FAERS Safety Report 4698919-X (Version None)
Quarter: 2005Q2

REPORT INFORMATION
  Report Type: 
  Country: None (occurrence: None)
  Receive Date: 20050624
  Receipt Date: 20050621
  Transmission Date: 20051028
  Serious: Yes (Death, Life-Threatening, Hospitalization)
  Sender: FDA-Public Use
  Company Number: CH-JNJFOC-20050605586

PATIENT
  Sex: Male

DRUGS (7)
  1. REMICADE [Suspect]
     Route: 042
  2. REMICADE [Suspect]
     Route: 042
  3. REMICADE [Suspect]
     Route: 042
  4. PREDNISON [Concomitant]
     Route: 049
  5. PREDNISON [Concomitant]
     Route: 049
  6. PREDNISON [Concomitant]
     Route: 049
  7. SANDIMMUNE [Concomitant]
     Route: 049

REACTIONS (3)
  - BRAIN OEDEMA [None]
  - MENINGITIS [None]
  - MENINGOCOCCAL SEPSIS [None]
